FAERS Safety Report 5133862-3 (Version None)
Quarter: 2006Q4

REPORT INFORMATION
  Report Type: 
  Country: None (occurrence: None)
  Receive Date: 20061018
  Receipt Date: 20061005
  Transmission Date: 20070319
  Serious: Yes (Death, Hospitalization, Other)
  Sender: FDA-Public Use
  Company Number: 2006072840

PATIENT
  Age: 77 Year
  Sex: Male

DRUGS (2)
  1. MACUGEN [Suspect]
     Indication: MACULAR DEGENERATION
     Dosage: 0.3 MG (0.3 MG, TWO INJECTIONS), INTRAVITREOUS
     Route: 050
     Dates: start: 20060322, end: 20060426
  2. MACUGEN [Suspect]

REACTIONS (6)
  - ACUTE MYOCARDIAL INFARCTION [None]
  - CEREBROVASCULAR ACCIDENT [None]
  - RENAL FAILURE [None]
  - SKIN DISCOLOURATION [None]
  - SKIN REACTION [None]
  - URINARY TRACT INFECTION [None]
